FAERS Safety Report 24624192 (Version 1)
Quarter: 2024Q4

REPORT INFORMATION
  Report Type: Spontaneous
  Country: GB (occurrence: GB)
  Receive Date: 20241115
  Receipt Date: 20241115
  Transmission Date: 20250114
  Serious: Yes (Other)
  Sender: BOEHRINGER INGELHEIM
  Company Number: GB-MHRA-EMIS-4013-b1d4d088-d335-46c9-bfb1-69567f67c967

PATIENT
  Age: 76 Year
  Sex: Male
  Weight: 98 kg

DRUGS (9)
  1. SPIRIVA RESPIMAT [Suspect]
     Active Substance: TIOTROPIUM BROMIDE
     Indication: Product used for unknown indication
     Dosage: TWO PUFFS TO BE INHALED ONCE DAILY- PHARAMACY PLEASE SHOW HOW TO USE - THIS IS A NEW INHALER
     Route: 055
     Dates: start: 20240924
  2. MICONAZOLE [Concomitant]
     Active Substance: MICONAZOLE
     Indication: Product used for unknown indication
     Dosage: APPLY THINLY THREE TIMES A DAY?15G
     Dates: start: 20240830
  3. HYDROCORTISONE [Concomitant]
     Active Substance: HYDROCORTISONE
     Indication: Product used for unknown indication
     Dosage: APPLY THINLY AS DIRECTED?15G
     Dates: start: 20240830
  4. AMOXICILLIN [Concomitant]
     Active Substance: AMOXICILLIN
     Indication: Product used for unknown indication
     Dosage: ONE TO BE TAKEN THREE TIMES A DAY
     Dates: start: 20240905, end: 20241004
  5. DOXAZOSIN [Concomitant]
     Active Substance: DOXAZOSIN\DOXAZOSIN MESYLATE
     Indication: Product used for unknown indication
     Dosage: ONE TO BE TAKEN DAILY THEN INCREASE TO 2 DAILY AFTER 1 WEEK
     Dates: start: 20240905
  6. DOXYCYCLINE [Concomitant]
     Active Substance: DOXYCYCLINE
     Indication: Product used for unknown indication
     Dosage: TWO TO BE TAKEN ON THE FIRST DAY THEN ONE TO BE TAKEN EACH DAY
     Dates: start: 20240918, end: 20241031
  7. PREDNISOLONE [Concomitant]
     Active Substance: PREDNISOLONE
     Indication: Product used for unknown indication
     Dosage: SIX TO BE TAKEN EACH DAY
     Dates: start: 20240918, end: 20241017
  8. MOMETASONE [Concomitant]
     Active Substance: MOMETASONE
     Indication: Product used for unknown indication
     Dosage: TWO SPRAYS TO BE USED IN EACH NOSTRIL TWICE A DAY, THEN REDUCE WHEN SYMPTOMS UNDER CONTROL
     Dates: start: 20240918, end: 20241031
  9. Spikevax JN.1 COVID-19 mRNA Vaccine 0.1mg/ml dispersion for injection [Concomitant]
     Indication: Product used for unknown indication
     Dosage: 0.5 ML INTRAMUSCULAR ROUTE
     Route: 030
     Dates: start: 20241008, end: 20241008

REACTIONS (3)
  - Intraocular pressure test [Unknown]
  - Eye pain [Unknown]
  - Vision blurred [Unknown]
